FAERS Safety Report 24913680 (Version 2)
Quarter: 2025Q1

REPORT INFORMATION
  Report Type: Spontaneous
  Country: NL (occurrence: NL)
  Receive Date: 20250201
  Receipt Date: 20250210
  Transmission Date: 20250409
  Serious: No
  Sender: ASTELLAS
  Company Number: NL-ASTELLAS-2025-AER-005995

PATIENT
  Age: 56 Year
  Sex: Female

DRUGS (1)
  1. VEOZAH [Suspect]
     Active Substance: FEZOLINETANT
     Indication: Menopausal symptoms
     Route: 048
     Dates: start: 2024, end: 202501

REACTIONS (1)
  - Drug ineffective [Unknown]
